FAERS Safety Report 10335166 (Version 1)
Quarter: 2014Q3

REPORT INFORMATION
  Report Type: Spontaneous
  Country: BR (occurrence: BR)
  Receive Date: 20140723
  Receipt Date: 20140723
  Transmission Date: 20150326
  Serious: Yes (Hospitalization, Other)
  Sender: FDA-Public Use
  Company Number: BR-PFIZER INC-2014200965

PATIENT
  Age: 56 Year
  Sex: Male

DRUGS (1)
  1. SUTENT [Suspect]
     Active Substance: SUNITINIB MALATE
     Indication: RENAL CELL CARCINOMA
     Dosage: 50 MG, 4X2 CYCLE
     Route: 048
     Dates: start: 20140305

REACTIONS (5)
  - Renal cell carcinoma [Unknown]
  - Pain in extremity [Unknown]
  - Diplegia [Unknown]
  - Disease progression [Unknown]
  - Spinal disorder [Unknown]

NARRATIVE: CASE EVENT DATE: 2014
